FAERS Safety Report 4406491-4 (Version None)
Quarter: 2004Q3

REPORT INFORMATION
  Report Type: 
  Country: None (occurrence: None)
  Receive Date: 20040716
  Receipt Date: 20040705
  Transmission Date: 20050211
  Serious: Yes (Other)
  Sender: FDA-Public Use
  Company Number: 2004222530JP

PATIENT
  Sex: 0

DRUGS (2)
  1. XALATAN [Suspect]
     Indication: GLAUCOMA
     Dosage: QD, OPHTHALMIC
     Route: 047
     Dates: start: 20040301
  2. TIMOLOL MALEATE [Suspect]
     Indication: GLAUCOMA
     Dosage: OPHTHALMIC
     Route: 047

REACTIONS (4)
  - DRUG EFFECT DECREASED [None]
  - EYE PAIN [None]
  - IRIS CYST [None]
  - KERATITIS HERPETIC [None]
